FAERS Safety Report 25355242 (Version 2)
Quarter: 2025Q2

REPORT INFORMATION
  Report Type: Spontaneous
  Country: US (occurrence: US)
  Receive Date: 20250524
  Receipt Date: 20250616
  Transmission Date: 20250717
  Serious: Yes (Other)
  Sender: ROCHE
  Company Number: US-ROCHE-10000289783

PATIENT
  Age: 83 Year
  Sex: Male

DRUGS (3)
  1. VABYSMO [Suspect]
     Active Substance: FARICIMAB-SVOA
     Indication: Neovascular age-related macular degeneration
     Dosage: ADMINISTERED IN RIGHT EYE?12 INJECTION PRIOR TO AE?LAST DOSE OF VABYSMO PRIOR TO AE ONSET ON: 8-APR-
     Route: 050
     Dates: start: 20231218, end: 20250505
  2. BETADINE [Concomitant]
     Active Substance: POVIDONE-IODINE
  3. VIBEGRON [Concomitant]
     Active Substance: VIBEGRON
     Dates: start: 202008

REACTIONS (5)
  - Iritis [Recovered/Resolved]
  - Glaucoma [Recovered/Resolved]
  - Off label use [Unknown]
  - Iridocyclitis [Recovered/Resolved]
  - Non-infectious endophthalmitis [Recovered/Resolved]

NARRATIVE: CASE EVENT DATE: 20250505
